FAERS Safety Report 20953990 (Version 1)
Quarter: 2022Q2

REPORT INFORMATION
  Report Type: Spontaneous
  Country: US (occurrence: US)
  Receive Date: 20220614
  Receipt Date: 20220614
  Transmission Date: 20220721
  Serious: No
  Sender: FDA-Public Use
  Company Number: US-AMGEN-USASP2022099178

PATIENT
  Age: 73 Year
  Sex: Female

DRUGS (2)
  1. KANJINTI [Suspect]
     Active Substance: TRASTUZUMAB-ANNS
     Indication: Breast cancer
     Dosage: 504 MILLIGRAM
     Route: 065
     Dates: start: 20220321
  2. KANJINTI [Suspect]
     Active Substance: TRASTUZUMAB-ANNS
     Dosage: 504 UNK
     Route: 065

REACTIONS (1)
  - Intercepted medication error [Unknown]

NARRATIVE: CASE EVENT DATE: 20220523
